FAERS Safety Report 5958979-2 (Version None)
Quarter: 2008Q4

REPORT INFORMATION
  Report Type: 
  Country: None (occurrence: None)
  Receive Date: 20081117
  Receipt Date: 20081110
  Transmission Date: 20090506
  Serious: Yes (Hospitalization)
  Sender: FDA-Public Use
  Company Number: MSTR-NO-0811S-0121

PATIENT
  Age: 75 Year
  Sex: Male
  Weight: 46.3 kg

DRUGS (2)
  1. METASTRON [Suspect]
     Indication: BONE PAIN
     Dosage: 2.8 ML, SINGLE DOSE, I.V.
     Route: 042
     Dates: start: 20080327, end: 20080327
  2. METASTRON [Suspect]
     Indication: METASTATIC PAIN
     Dosage: 2.8 ML, SINGLE DOSE, I.V.
     Route: 042
     Dates: start: 20080327, end: 20080327

REACTIONS (3)
  - ANAEMIA [None]
  - HAEMATURIA [None]
  - TUMOUR HAEMORRHAGE [None]
